FAERS Safety Report 9421092 (Version 1)
Quarter: 2013Q3

REPORT INFORMATION
  Report Type: Spontaneous
  Country: US (occurrence: US)
  Receive Date: 20130725
  Receipt Date: 20130725
  Transmission Date: 20140515
  Serious: Yes (Other)
  Sender: FDA-Public Use
  Company Number: CHPA2013US010852

PATIENT
  Age: 80 Year
  Sex: Male

DRUGS (1)
  1. PERDIEM OVERNIGHT RELIEF PILLS [Suspect]
     Indication: BOWEL MOVEMENT IRREGULARITY
     Dosage: 3 DF, QD
     Route: 048
     Dates: start: 198301

REACTIONS (3)
  - Heart rate irregular [Unknown]
  - Off label use [Unknown]
  - Incorrect drug administration duration [Unknown]
